FAERS Safety Report 16893918 (Version 2)
Quarter: 2021Q1

REPORT INFORMATION
  Report Type: Report from Study
  Country: CA (occurrence: CA)
  Receive Date: 20191008
  Receipt Date: 20210108
  Transmission Date: 20210419
  Serious: Yes (Other)
  Sender: FDA-Public Use
  Company Number: CA-JNJFOC-20190937923

PATIENT
  Age: 60 Year
  Sex: Female

DRUGS (2)
  1. SIMPONI [Suspect]
     Active Substance: GOLIMUMAB
     Indication: ANKYLOSING SPONDYLITIS
     Route: 058
     Dates: start: 20110224
  2. SIMPONI [Suspect]
     Active Substance: GOLIMUMAB
     Route: 058

REACTIONS (7)
  - Product use issue [Unknown]
  - Off label use [Unknown]
  - Eye haemorrhage [Unknown]
  - Oral herpes [Unknown]
  - Pneumonia [Recovered/Resolved]
  - Paraesthesia [Not Recovered/Not Resolved]
  - Aphthous ulcer [Unknown]

NARRATIVE: CASE EVENT DATE: 20190801
